FAERS Safety Report 8348060-X (Version None)
Quarter: 2012Q2

REPORT INFORMATION
  Report Type: 
  Country: None (occurrence: None)
  Receive Date: 20120509
  Receipt Date: 20120425
  Transmission Date: 20120825
  Serious: Yes (Hospitalization)
  Sender: FDA-Public Use
  Company Number: JP-VERTEX PHARMACEUTICALS INC.-AE-2012-003622

PATIENT
  Age: 67 Year
  Sex: Female

DRUGS (17)
  1. TELAVIC (TELAPREVIR) [Suspect]
     Route: 048
     Dates: start: 20120405
  2. RIBAVIRIN [Concomitant]
     Route: 048
     Dates: start: 20120221, end: 20120301
  3. TOUGHMAC E [Concomitant]
     Route: 048
     Dates: start: 20120125
  4. ALLEGRA [Concomitant]
     Route: 048
     Dates: start: 20120126
  5. CLOBETASOL PROPIONATE [Concomitant]
     Route: 061
     Dates: start: 20120126
  6. RIBAVIRIN [Concomitant]
     Indication: HEPATITIS C
     Route: 048
     Dates: start: 20120124, end: 20120207
  7. RIBAVIRIN [Concomitant]
     Route: 048
     Dates: start: 20120208, end: 20120220
  8. PEGINTERFERON ALFA-2A [Concomitant]
     Indication: HEPATITIS C
     Route: 051
     Dates: start: 20120124, end: 20120224
  9. RABEPRAZOLE SODIUM [Concomitant]
     Route: 048
     Dates: start: 20120210
  10. TELAVIC (TELAPREVIR) [Suspect]
     Route: 048
     Dates: start: 20120221, end: 20120301
  11. TELAVIC (TELAPREVIR) [Suspect]
     Indication: HEPATITIS C
     Route: 048
     Dates: start: 20120124, end: 20120130
  12. TELAVIC (TELAPREVIR) [Suspect]
     Route: 048
     Dates: start: 20120131, end: 20120220
  13. RIBAVIRIN [Concomitant]
     Route: 048
     Dates: start: 20120405
  14. PEGINTERFERON ALFA-2A [Concomitant]
     Route: 058
     Dates: start: 20120405
  15. MAGMITT [Concomitant]
     Route: 048
     Dates: start: 20120125
  16. VOLTAREN [Concomitant]
     Route: 054
     Dates: start: 20120124
  17. MOTILIUM [Concomitant]
     Route: 048
     Dates: start: 20120323

REACTIONS (2)
  - ANAEMIA [None]
  - DECREASED APPETITE [None]
